FAERS Safety Report 18767087 (Version 1)
Quarter: 2021Q1

REPORT INFORMATION
  Report Type: Report from Study
  Country: US (occurrence: US)
  Receive Date: 20210121
  Receipt Date: 20210121
  Transmission Date: 20210419
  Serious: Yes (Death, Other)
  Sender: FDA-Public Use
  Company Number: US-JNJFOC-20210123468

PATIENT

DRUGS (1)
  1. SPORANOX [Suspect]
     Active Substance: ITRACONAZOLE
     Indication: PENICILLIUM INFECTION
     Route: 065

REACTIONS (5)
  - Fungal infection [Unknown]
  - Drug resistance [Unknown]
  - Fungaemia [Unknown]
  - Death [Fatal]
  - Immune reconstitution inflammatory syndrome [Unknown]
